FAERS Safety Report 5201237-4 (Version None)
Quarter: 2007Q1

REPORT INFORMATION
  Report Type: 
  Country: None (occurrence: None)
  Receive Date: 20070103
  Receipt Date: 20061221
  Transmission Date: 20070707
  Serious: Yes (Hospitalization)
  Sender: FDA-Public Use
  Company Number: FSC_0025_2006

PATIENT
  Age: 46 Year
  Sex: Female

DRUGS (5)
  1. ISOPTIN [Suspect]
     Indication: MIGRAINE
     Dosage: DF PO   A  FEW YEARS
     Route: 048
     Dates: end: 20061109
  2. PREGABALINE [Suspect]
     Indication: NEURALGIA
     Dosage: 50 MG PO
     Route: 048
     Dates: start: 20061108, end: 20061109
  3. PREGABALINE [Suspect]
     Indication: NEURALGIA
     Dosage: 25 MG PO
     Route: 048
     Dates: start: 20061109, end: 20061109
  4. TRIPTAN [Concomitant]
  5. ZOLPIDEM TARTRATE [Concomitant]

REACTIONS (5)
  - ASTHENIA [None]
  - ATRIOVENTRICULAR BLOCK FIRST DEGREE [None]
  - BRADYCARDIA [None]
  - MALAISE [None]
  - VERTIGO [None]
